FAERS Safety Report 18781404 (Version 1)
Quarter: 2021Q1

REPORT INFORMATION
  Report Type: Spontaneous
  Country: PK (occurrence: PK)
  Receive Date: 20210125
  Receipt Date: 20210125
  Transmission Date: 20210419
  Serious: Yes (Hospitalization, Other)
  Sender: FDA-Public Use
  Company Number: PK-ACCORD-215536

PATIENT
  Age: 70 Year
  Sex: Female

DRUGS (7)
  1. RIFAMPICIN [Interacting]
     Active Substance: RIFAMPIN
     Indication: TUBERCULOSIS
  2. ATENOLOL/CHLORTALIDONE [Concomitant]
     Active Substance: ATENOLOL\CHLORTHALIDONE
  3. DICLOFENAC [Concomitant]
     Active Substance: DICLOFENAC
     Route: 061
  4. ACETYLSALICYLIC ACID [Concomitant]
     Active Substance: ASPIRIN
  5. AMLODIPINE [Suspect]
     Active Substance: AMLODIPINE BESYLATE
     Indication: PRODUCT USED FOR UNKNOWN INDICATION
  6. PRAVASTATIN. [Concomitant]
     Active Substance: PRAVASTATIN
  7. POTASSIUM [Concomitant]
     Active Substance: POTASSIUM

REACTIONS (2)
  - Hypertension [Recovered/Resolved]
  - Drug interaction [Unknown]
